FAERS Safety Report 6340532-2 (Version None)
Quarter: 2009Q3

REPORT INFORMATION
  Report Type: 
  Country: None (occurrence: None)
  Receive Date: 20090904
  Receipt Date: 20090807
  Transmission Date: 20100115
  Serious: No
  Sender: FDA-Public Use
  Company Number: US-JNJFOC-20090803095

PATIENT
  Age: 24 Year
  Sex: Male

DRUGS (3)
  1. INVEGA [Suspect]
     Indication: PARANOID PERSONALITY DISORDER
     Route: 048
  2. LEXAPRO [Concomitant]
     Indication: DEPRESSION
  3. ZOCOR [Concomitant]
     Indication: HYPERCHOLESTEROLAEMIA

REACTIONS (1)
  - MALE ORGASMIC DISORDER [None]
